FAERS Safety Report 4296372-1 (Version None)
Quarter: 2004Q1

REPORT INFORMATION
  Report Type: 
  Country: None (occurrence: None)
  Receive Date: 20040213
  Receipt Date: 20040213
  Transmission Date: 20041129
  Serious: Yes (Hospitalization)
  Sender: FDA-Public Use
  Company Number: None

PATIENT
  Sex: Female
  Weight: 57.1532 kg

DRUGS (6)
  1. PREDNISONE [Suspect]
     Indication: DERMATITIS CONTACT
     Dosage: 60 MG PO QD
     Route: 048
     Dates: start: 20030909
  2. ZOLOFT [Concomitant]
  3. LEVOXYL [Concomitant]
  4. STRATTERA [Concomitant]
  5. FOCALIN [Concomitant]
  6. KEFLEX [Concomitant]

REACTIONS (2)
  - DYSPNOEA [None]
  - HYPERVENTILATION [None]
